FAERS Safety Report 15842324 (Version 1)
Quarter: 2019Q1

REPORT INFORMATION
  Report Type: Spontaneous
  Country: IL (occurrence: IL)
  Receive Date: 20190118
  Receipt Date: 20190118
  Transmission Date: 20190417
  Serious: Yes (Hospitalization, Other)
  Sender: FDA-Public Use
  Company Number: IL-MYLANLABS-2019M1001613

PATIENT
  Sex: Female

DRUGS (3)
  1. METHYLPREDNISOLONE. [Suspect]
     Active Substance: METHYLPREDNISOLONE
     Indication: DERMATOMYOSITIS
     Dosage: PULSE THERAPY FOR 3 DAYS
     Route: 065
  2. METHYLPREDNISOLONE. [Suspect]
     Active Substance: METHYLPREDNISOLONE
     Indication: CONDITION AGGRAVATED
  3. PREDNISONE. [Suspect]
     Active Substance: PREDNISONE
     Indication: DERMATOMYOSITIS
     Route: 065

REACTIONS (4)
  - Drug ineffective [Unknown]
  - Drug withdrawal syndrome [Recovering/Resolving]
  - Condition aggravated [Recovering/Resolving]
  - Dermatomyositis [Recovering/Resolving]
